FAERS Safety Report 10241596 (Version 2)
Quarter: 2014Q2

REPORT INFORMATION
  Report Type: Spontaneous
  Country: FR (occurrence: FR)
  Receive Date: 20140617
  Receipt Date: 20140617
  Transmission Date: 20141212
  Serious: Yes (Other)
  Sender: FDA-Public Use
  Company Number: FR-SA-2014SA061169

PATIENT
  Age: 60 Year
  Sex: Female

DRUGS (5)
  1. LOVENOX [Suspect]
     Indication: PROPHYLAXIS
     Route: 058
     Dates: start: 20140501, end: 20140514
  2. EZETROL [Concomitant]
     Indication: HYPERCHOLESTEROLAEMIA
     Route: 048
  3. ARIMIDEX [Concomitant]
     Indication: BREAST CANCER
     Route: 048
  4. ATARAX [Concomitant]
     Indication: SLEEP DISORDER
     Route: 048
  5. FLOXYFRAL [Concomitant]
     Indication: ANXIETY
     Route: 048

REACTIONS (3)
  - Loss of consciousness [Recovered/Resolved]
  - Asthenia [Recovered/Resolved]
  - Diarrhoea [Recovered/Resolved]
